FAERS Safety Report 17872824 (Version 1)
Quarter: 2020Q2

REPORT INFORMATION
  Report Type: Report from Study
  Country: CO (occurrence: CO)
  Receive Date: 20200608
  Receipt Date: 20200608
  Transmission Date: 20200714
  Serious: Yes (Hospitalization)
  Sender: FDA-Public Use
  Company Number: NVSC2019CO091288

PATIENT
  Age: 17 Year

DRUGS (2)
  1. JADENU [Suspect]
     Active Substance: DEFERASIROX
     Indication: CHRONIC MYELOID LEUKAEMIA
     Dosage: 180 MG
     Route: 065
  2. JADENU [Suspect]
     Active Substance: DEFERASIROX
     Dosage: 360 MG
     Route: 065

REACTIONS (5)
  - Oropharyngeal plaque [Unknown]
  - Pyrexia [Unknown]
  - Decreased appetite [Unknown]
  - Oedema mouth [Unknown]
  - Weight decreased [Unknown]
